FAERS Safety Report 5108185-9 (Version None)
Quarter: 2006Q3

REPORT INFORMATION
  Report Type: 
  Country: None (occurrence: None)
  Receive Date: 20060919
  Receipt Date: 20060824
  Transmission Date: 20061208
  Serious: Yes (Disabling)
  Sender: FDA-Public Use
  Company Number: US-ROCHE-460965

PATIENT
  Age: 15 Year
  Sex: Female
  Weight: 50.8 kg

DRUGS (1)
  1. ACCUTANE [Suspect]
     Indication: ACNE
     Route: 048
     Dates: start: 20060420, end: 20060823

REACTIONS (2)
  - DENTAL CARIES [None]
  - TOOTH DISORDER [None]
